FAERS Safety Report 21039925 (Version 2)
Quarter: 2022Q3

REPORT INFORMATION
  Report Type: Spontaneous
  Country: US (occurrence: US)
  Receive Date: 20220704
  Receipt Date: 20220711
  Transmission Date: 20221027
  Serious: No
  Sender: FDA-Public Use
  Company Number: US-LUPIN PHARMACEUTICALS INC.-2022-09034

PATIENT
  Sex: Female

DRUGS (2)
  1. ALBUTEROL SULFATE [Suspect]
     Active Substance: ALBUTEROL SULFATE
     Indication: Chronic obstructive pulmonary disease
     Dosage: UNK UNK, PRN, 2 PUFFS DAILY AND AS NEEDED
  2. ALBUTEROL SULFATE [Suspect]
     Active Substance: ALBUTEROL SULFATE
     Indication: Lung disorder

REACTIONS (2)
  - Foreign body in mouth [Unknown]
  - Device breakage [Unknown]
